FAERS Safety Report 5489262-X (Version None)
Quarter: 2007Q4

REPORT INFORMATION
  Report Type: 
  Country: None (occurrence: None)
  Receive Date: 20071018
  Receipt Date: 20071010
  Transmission Date: 20080405
  Serious: Yes (Death)
  Sender: FDA-Public Use
  Company Number: FR-AVENTIS-200713242FR

PATIENT
  Age: 93 Year
  Sex: Female

DRUGS (18)
  1. LASIX [Suspect]
     Route: 048
     Dates: start: 20070629, end: 20070703
  2. LASIX [Suspect]
     Route: 048
     Dates: start: 20070704, end: 20070718
  3. TAVANIC [Suspect]
     Route: 048
     Dates: start: 20070704, end: 20070708
  4. TAVANIC [Suspect]
     Route: 048
     Dates: start: 20070709, end: 20070713
  5. ZAMUDOL [Suspect]
     Route: 048
     Dates: start: 20070628, end: 20070713
  6. INIPOMP                            /01263201/ [Suspect]
     Route: 048
     Dates: start: 20070705, end: 20070718
  7. KARDEGIC                           /00002703/ [Suspect]
     Route: 048
     Dates: start: 20070705, end: 20070718
  8. ROCEPHIN [Suspect]
     Route: 042
     Dates: start: 20070709, end: 20070718
  9. DAFALGAN                           /00020001/ [Concomitant]
     Dates: start: 20070628
  10. ZAMUDOL [Concomitant]
     Dates: start: 20070628
  11. CACIT D3 [Concomitant]
     Dates: start: 20070628
  12. SEROPRAM [Concomitant]
     Dates: start: 20070703
  13. AUGMENTIN '125' [Concomitant]
     Route: 048
     Dates: start: 20070630, end: 20070704
  14. AUGMENTIN '125' [Concomitant]
     Dates: start: 20070715, end: 20070716
  15. TANAKAN                            /01003103/ [Concomitant]
     Dates: end: 20070101
  16. CHONDROSULF [Concomitant]
     Dates: end: 20070101
  17. TERBUTALINE [Concomitant]
     Route: 055
     Dates: start: 20070630, end: 20070101
  18. IPRATROPIUM BROMIDE [Concomitant]
     Route: 055
     Dates: start: 20070630, end: 20070101

REACTIONS (1)
  - RENAL FAILURE ACUTE [None]
